FAERS Safety Report 7405629-4 (Version None)
Quarter: 2011Q2

REPORT INFORMATION
  Report Type: 
  Country: None (occurrence: None)
  Receive Date: 20110411
  Receipt Date: 20110207
  Transmission Date: 20111010
  Serious: Yes (Death, Other)
  Sender: FDA-Public Use
  Company Number: US-BAYER-2011-010571

PATIENT
  Age: 19 Year
  Sex: Male
  Weight: 70.748 kg

DRUGS (20)
  1. TOPROL-XL [Concomitant]
     Dosage: 75 MG, QD
     Route: 048
  2. POTASSIUM CHLORIDE [Concomitant]
     Dosage: 40 MEQ, BID
     Route: 048
  3. AMINOCAPROIC ACID [Concomitant]
     Dosage: 10 G, UNK
     Route: 042
     Dates: start: 20061218
  4. METHYLPREDNISOLONE [Concomitant]
     Dosage: 500 MG, UNK
     Route: 042
     Dates: start: 20061218
  5. MILRINONE [Concomitant]
     Dosage: 2 MG, UNK
     Route: 042
     Dates: start: 20061218
  6. FENTANYL [Concomitant]
     Dosage: 2000 MCG
     Route: 042
     Dates: start: 20061218
  7. CEFUROXIME [Concomitant]
     Dosage: 1.5 G, UNK
     Route: 042
     Dates: start: 20061218
  8. ISOPROTERENOL HCL [Concomitant]
     Dosage: UNK
     Route: 042
     Dates: start: 20061218
  9. LASIX [Concomitant]
     Dosage: 40 MG, BID
     Route: 048
  10. TRASYLOL [Suspect]
     Indication: CARDIAC OPERATION
     Dosage: UNK
     Route: 042
     Dates: start: 20061218
  11. SUCCINYLCHOLINE CHLORIDE [Concomitant]
     Dosage: 100 MG, UNK
     Route: 042
     Dates: start: 20061218
  12. HEPARIN [Concomitant]
     Dosage: 21000 U, UNK
     Route: 042
     Dates: start: 20061218
  13. PANCURONIUM BROMIDE [Concomitant]
     Dosage: 10 MG, UNK
     Route: 042
     Dates: start: 20061218
  14. PLATELETS [Concomitant]
     Dosage: 768 UNITS UNSPECIFIED
     Route: 042
     Dates: start: 20061218
  15. NOREPINEPHRINE BITARTRATE [Concomitant]
     Dosage: UNK
     Route: 042
     Dates: start: 20061218
  16. ATACAND HCT [Concomitant]
     Dosage: 4 MG, QD
     Route: 048
  17. AMIODARONE HCL [Concomitant]
     Dosage: 250 MG, UNK
     Route: 042
     Dates: start: 20061218
  18. PHENYLEPHRINE HCL [Concomitant]
     Dosage: 800 MCG
     Route: 042
     Dates: start: 20061218
  19. PROTAMINE SULFATE [Concomitant]
     Dosage: 250 MG, UNK
     Route: 042
     Dates: start: 20061218
  20. CALCIUM CHLORIDE [Concomitant]
     Dosage: 500 MG, UNK
     Route: 042
     Dates: start: 20061218

REACTIONS (9)
  - ANHEDONIA [None]
  - DEATH [None]
  - RENAL FAILURE [None]
  - INJURY [None]
  - FEAR [None]
  - UNEVALUABLE EVENT [None]
  - DEPRESSION [None]
  - PAIN [None]
  - ANXIETY [None]
